FAERS Safety Report 11795864 (Version 2)
Quarter: 2015Q4

REPORT INFORMATION
  Report Type: Spontaneous
  Country: US (occurrence: US)
  Receive Date: 20151203
  Receipt Date: 20151215
  Transmission Date: 20160305
  Serious: No
  Sender: FDA-Public Use
  Company Number: US-009507513-1512USA001151

PATIENT

DRUGS (3)
  1. NEXPLANON [Suspect]
     Active Substance: ETONOGESTREL
     Dosage: 68MG EVERY 3 YEARS
     Route: 059
     Dates: start: 20151125, end: 20151125
  2. NEXPLANON [Suspect]
     Active Substance: ETONOGESTREL
     Dosage: 68MG EVERY 3 YEARS
     Route: 059
     Dates: start: 20151125, end: 20151201
  3. NEXPLANON [Suspect]
     Active Substance: ETONOGESTREL
     Dosage: 68 MG EVERY 3 YEARS
     Route: 059
     Dates: start: 20151201

REACTIONS (4)
  - Device expulsion [Recovered/Resolved]
  - Device difficult to use [Recovered/Resolved]
  - Device difficult to use [Recovered/Resolved]
  - No adverse event [Unknown]

NARRATIVE: CASE EVENT DATE: 20151125
